FAERS Safety Report 8602532 (Version 4)
Quarter: 2012Q4

REPORT INFORMATION
  Report Type: 
  Country: CA (occurrence: CA)
  Receive Date: 20120607
  Receipt Date: 20121127
  Transmission Date: 20130627
  Serious: Yes (Disabling, Other)
  Sender: FDA-Public Use
  Company Number: CA-SANOFI-AVENTIS-2012SA037594

PATIENT
  Age: 69 Year
  Sex: Male
  Weight: 102 kg

DRUGS (7)
  1. PLAVIX [Suspect]
     Indication: STENT PLACEMENT
     Route: 048
     Dates: start: 20111120, end: 20120510
  2. PLAVIX [Suspect]
     Indication: STENT PLACEMENT
     Route: 048
  3. ASPIRIN [Concomitant]
     Indication: STENT PLACEMENT
     Route: 048
  4. ASPIRIN [Concomitant]
     Indication: STENT PLACEMENT
     Route: 048
     Dates: start: 20111122
  5. METFORMIN [Concomitant]
     Dates: start: 201101
  6. ROSUVASTATIN CALCIUM [Concomitant]
     Dates: start: 201101
  7. OXYCOCET [Concomitant]
     Dosage: Dose: 10 mg?
     Dates: start: 20111122, end: 20111215

REACTIONS (8)
  - Oesophageal perforation [Not Recovered/Not Resolved]
  - Disability [Not Recovered/Not Resolved]
  - Oesophageal ulcer [Not Recovered/Not Resolved]
  - Oesophagitis [Not Recovered/Not Resolved]
  - Myocardial infarction [Not Recovered/Not Resolved]
  - Hypertension [Not Recovered/Not Resolved]
  - Pain [Not Recovered/Not Resolved]
  - Nausea [Not Recovered/Not Resolved]
